FAERS Safety Report 9523648 (Version 1)
Quarter: 2013Q3

REPORT INFORMATION
  Report Type: Spontaneous
  Country: JP (occurrence: JP)
  Receive Date: 20130913
  Receipt Date: 20130913
  Transmission Date: 20140515
  Serious: Yes (Hospitalization, Other)
  Sender: FDA-Public Use
  Company Number: JP-009507513-1309JPN005228

PATIENT
  Sex: Female

DRUGS (2)
  1. FOSAMAC TABLETS 35MG [Suspect]
     Dosage: DAILY DOSE UNKNOWN
     Route: 048
  2. FOSAMAC TABLETS 35MG [Suspect]
     Dosage: DAILY DOSE UNKNOWN
     Route: 048

REACTIONS (1)
  - Cerebral infarction [Unknown]
